FAERS Safety Report 7352735-9 (Version None)
Quarter: 2011Q1

REPORT INFORMATION
  Report Type: 
  Country: None (occurrence: None)
  Receive Date: 20110315
  Receipt Date: 20110304
  Transmission Date: 20110831
  Serious: Yes (Hospitalization)
  Sender: FDA-Public Use
  Company Number: NL-BAXTER-2010BH021373

PATIENT
  Age: 42 Year
  Sex: Female

DRUGS (39)
  1. GAMMAGARD LIQUID [Suspect]
     Route: 042
     Dates: start: 20100903, end: 20100903
  2. MOVICOLON [Concomitant]
  3. TIZANIDINE [Concomitant]
     Dates: end: 20100910
  4. GAMMAGARD LIQUID [Suspect]
     Route: 042
     Dates: start: 20100806, end: 20100806
  5. GAMMAGARD LIQUID [Suspect]
     Route: 042
     Dates: start: 20100319
  6. GAMMAGARD LIQUID [Suspect]
     Route: 042
     Dates: start: 20101228, end: 20101228
  7. GAMMAGARD LIQUID [Suspect]
     Route: 042
     Dates: start: 20110124, end: 20110124
  8. GAMMAGARD LIQUID [Suspect]
     Route: 042
     Dates: start: 20101130, end: 20101130
  9. RIVOTRIL [Concomitant]
  10. DUSPATAL [Concomitant]
  11. SIMVASTATIN [Concomitant]
  12. INDOMETACIN [Concomitant]
     Dates: start: 20100101, end: 20100910
  13. GAMMAGARD LIQUID [Suspect]
     Route: 042
     Dates: start: 20100806, end: 20100806
  14. GAMMAGARD LIQUID [Suspect]
     Route: 042
     Dates: start: 20100903, end: 20100903
  15. GAMMAGARD LIQUID [Suspect]
     Route: 042
     Dates: start: 20100929, end: 20100929
  16. PARACETAMOL [Concomitant]
  17. ANTIDEPRESSANTS [Concomitant]
  18. GAMMAGARD LIQUID [Suspect]
     Route: 042
     Dates: start: 20100319
  19. GAMMAGARD LIQUID [Suspect]
     Route: 042
     Dates: start: 20101130, end: 20101130
  20. GAMMAGARD LIQUID [Suspect]
     Route: 042
     Dates: start: 20101130, end: 20101130
  21. ESOMEPRAZOLE [Concomitant]
  22. GAMMAGARD LIQUID [Suspect]
     Indication: OFF LABEL USE
     Route: 042
     Dates: start: 20100806, end: 20100806
  23. UBRETID [Concomitant]
  24. GAMMAGARD LIQUID [Suspect]
     Indication: MULTIPLE SCLEROSIS
     Route: 042
     Dates: start: 20100806, end: 20100806
  25. GAMMAGARD LIQUID [Suspect]
     Route: 042
     Dates: start: 20100929, end: 20100929
  26. GAMMAGARD LIQUID [Suspect]
     Route: 042
     Dates: start: 20101228, end: 20101228
  27. GAMMAGARD LIQUID [Suspect]
     Route: 042
     Dates: start: 20100929, end: 20100929
  28. GAMMAGARD LIQUID [Suspect]
     Route: 042
     Dates: start: 20101130, end: 20101130
  29. BACLOFEN [Concomitant]
  30. GAMMAGARD LIQUID [Suspect]
     Route: 042
     Dates: start: 20101029, end: 20101029
  31. GAMMAGARD LIQUID [Suspect]
     Route: 042
     Dates: start: 20110124, end: 20110124
  32. AMITRIPTYLINE [Concomitant]
  33. CELEBREX [Concomitant]
     Dates: end: 20100825
  34. GAMMAGARD LIQUID [Suspect]
     Route: 042
     Dates: start: 20100929, end: 20100929
  35. GAMMAGARD LIQUID [Suspect]
     Route: 042
     Dates: start: 20101029, end: 20101029
  36. GAMMAGARD LIQUID [Suspect]
     Route: 042
     Dates: start: 20101029, end: 20101029
  37. GAMMAGARD LIQUID [Suspect]
     Route: 042
     Dates: start: 20101029, end: 20101029
  38. PANTOZOL [Concomitant]
  39. ROPINIROLE [Concomitant]

REACTIONS (18)
  - MULTIPLE SCLEROSIS RELAPSE [None]
  - BACK PAIN [None]
  - HEADACHE [None]
  - FATIGUE [None]
  - SENSATION OF HEAVINESS [None]
  - CONSTIPATION [None]
  - ABDOMINAL DISTENSION [None]
  - HEMICEPHALALGIA [None]
  - PARAESTHESIA [None]
  - NERVE COMPRESSION [None]
  - GAIT DISTURBANCE [None]
  - FEELING ABNORMAL [None]
  - MALAISE [None]
  - PAIN IN EXTREMITY [None]
  - NECK PAIN [None]
  - NAUSEA [None]
  - DIZZINESS [None]
  - HYPERHIDROSIS [None]
